FAERS Safety Report 12384506 (Version 1)
Quarter: 2016Q2

REPORT INFORMATION
  Report Type: Spontaneous
  Country: US (occurrence: None)
  Receive Date: 20160518
  Receipt Date: 20160518
  Transmission Date: 20160815
  Serious: Yes (Other)
  Sender: FDA-Public Use
  Company Number: None

PATIENT
  Age: 62 Year
  Sex: Female
  Weight: 60.78 kg

DRUGS (2)
  1. SYNTHROID [Concomitant]
     Active Substance: LEVOTHYROXINE SODIUM
  2. LEVOTHYROXINE. [Suspect]
     Active Substance: LEVOTHYROXINE
     Indication: THYROID DISORDER
     Dosage: IN THE MORNING
     Route: 048
     Dates: start: 20160226, end: 20160429

REACTIONS (7)
  - Abdominal distension [None]
  - Discomfort [None]
  - Malaise [None]
  - Constipation [None]
  - Haemorrhoids [None]
  - Job dissatisfaction [None]
  - Product substitution issue [None]

NARRATIVE: CASE EVENT DATE: 20160227
